FAERS Safety Report 9896007 (Version 2)
Quarter: 2014Q1

REPORT INFORMATION
  Report Type: Spontaneous
  Country: US (occurrence: US)
  Receive Date: 20140213
  Receipt Date: 20140213
  Transmission Date: 20141002
  Serious: No
  Sender: FDA-Public Use
  Company Number: US-BRISTOL-MYERS SQUIBB COMPANY-18787689

PATIENT
  Age: 52 Year
  Sex: Female

DRUGS (4)
  1. ORENCIA [Suspect]
     Indication: RHEUMATOID ARTHRITIS
     Dosage: INTER ON:AUG2011 RESTART ON DEC2011 LAST INFUSION WAS IN MAR2012?23MAR11-JUN12?MAY13-ONG
     Route: 042
     Dates: start: 20110323
  2. ALPRAZOLAM [Concomitant]
  3. NORCO [Concomitant]
  4. LEVOTHYROXINE [Concomitant]

REACTIONS (2)
  - Bronchitis [Recovered/Resolved]
  - Drug ineffective [Unknown]
